FAERS Safety Report 7814542-X (Version None)
Quarter: 2011Q4

REPORT INFORMATION
  Report Type: 
  Country: None (occurrence: None)
  Receive Date: 20111012
  Receipt Date: 20110720
  Transmission Date: 20120403
  Serious: Yes (Hospitalization, Other)
  Sender: FDA-Public Use
  Company Number: 2011P1007759

PATIENT
  Age: 34 Year
  Sex: Male
  Weight: 124.7392 kg

DRUGS (2)
  1. ATRIPLA (EFAVIRENZ, EMTRICITABINE, AND TENOFOVIR) [Concomitant]
  2. JR WATKINS PETRO-CARBO MEDICATED FIRST AID SALVE (NO PREF. NAME) [Suspect]
     Indication: FOLLICULITIS
     Dates: start: 20110711

REACTIONS (2)
  - WOUND SECRETION [None]
  - PENILE SWELLING [None]
